FAERS Safety Report 4429624-2 (Version None)
Quarter: 2004Q3

REPORT INFORMATION
  Report Type: 
  Country: None (occurrence: None)
  Receive Date: 20040819
  Receipt Date: 20040809
  Transmission Date: 20050211
  Serious: Yes (Other)
  Sender: FDA-Public Use
  Company Number: 2004053996

PATIENT
  Age: 39 Year
  Sex: Female
  Weight: 61.2356 kg

DRUGS (3)
  1. SUDAFED SINUS HEADACHE CAPLETS (PARACETAMOL, PSEUDOEPHEDRINE) [Suspect]
     Indication: NASAL CONGESTION
     Dosage: 2 CAPSULES ONCE, 1 CAPLET ONCE
     Dates: start: 20040804, end: 20040804
  2. OXYMETAZOLINE HYDROCHLORIDE (OXYMETAZOLINE HYDROCHLORIDE) [Suspect]
     Indication: NASAL CONGESTION
     Dosage: 2 SPRAYS PER NOSTRIL
     Dates: start: 20040804, end: 20040804
  3. DILANTIN [Suspect]
     Indication: CONVULSION
     Dosage: 300 MG DAILY, ORAL
     Route: 048
     Dates: start: 20040805

REACTIONS (5)
  - COMA [None]
  - CONVULSION [None]
  - EMOTIONAL DISORDER [None]
  - FATIGUE [None]
  - FOAMING AT MOUTH [None]
